FAERS Safety Report 4537225-0 (Version None)
Quarter: 2004Q4

REPORT INFORMATION
  Report Type: 
  Country: None (occurrence: None)
  Receive Date: 20041221
  Receipt Date: 20041206
  Transmission Date: 20050328
  Serious: No
  Sender: FDA-Public Use
  Company Number: S04-USA-07795-01

PATIENT

DRUGS (2)
  1. LEXAPRO [Suspect]
     Dates: start: 20041206
  2. LEXAPRO [Suspect]

REACTIONS (2)
  - CONVULSION [None]
  - OVERDOSE [None]
